FAERS Safety Report 19211754 (Version 1)
Quarter: 2021Q2

REPORT INFORMATION
  Report Type: Spontaneous
  Country: DE (occurrence: DE)
  Receive Date: 20210504
  Receipt Date: 20210504
  Transmission Date: 20210717
  Serious: Yes (Hospitalization)
  Sender: FDA-Public Use
  Company Number: DE-TEVA-2021-DE-1907408

PATIENT
  Age: 59 Year
  Sex: Female

DRUGS (3)
  1. VERAPAMIL?RATIOPHARM N 80 MG FILMTABLETTEN [Suspect]
     Active Substance: VERAPAMIL HYDROCHLORIDE
     Indication: HYPERTENSION
     Dosage: 240 MILLIGRAM DAILY; 1?1?1
     Route: 048
     Dates: start: 202103
  2. RAMIPRIL?HEXAL 5MG [Concomitant]
     Dosage: 5 MILLIGRAM DAILY;
     Route: 048
     Dates: start: 202011
  3. VERAPAMIL?RATIOPHARM N 80 MG FILMTABLETTEN [Suspect]
     Active Substance: VERAPAMIL HYDROCHLORIDE
     Indication: HEART RATE INCREASED

REACTIONS (5)
  - Heart rate increased [Recovered/Resolved]
  - Tremor [Recovered/Resolved]
  - Nausea [Recovered/Resolved]
  - Dizziness [Recovered/Resolved]
  - Malaise [Recovered/Resolved]

NARRATIVE: CASE EVENT DATE: 2021
